FAERS Safety Report 4705048-5 (Version None)
Quarter: 2005Q3

REPORT INFORMATION
  Report Type: 
  Country: None (occurrence: None)
  Receive Date: 20050701
  Receipt Date: 20041221
  Transmission Date: 20060218
  Serious: Yes (Other)
  Sender: FDA-Public Use
  Company Number: PHEH2004US13528

PATIENT
  Age: 45 Year
  Sex: Male

DRUGS (4)
  1. TEGRETOL [Suspect]
     Indication: CONVULSION
     Dosage: UNK, UNK
     Route: 048
     Dates: start: 19890101, end: 19960101
  2. PHENOBARBITAL [Suspect]
  3. TEGRETOL-XR [Suspect]
     Dosage: 1700 MG, UNK
     Dates: start: 19960101, end: 20030101
  4. CARBATROL [Suspect]
     Dosage: 1500 MG, UNK
     Dates: start: 20030101

REACTIONS (1)
  - OSTEOPENIA [None]
